FAERS Safety Report 4330716-7 (Version None)
Quarter: 2004Q1

REPORT INFORMATION
  Report Type: 
  Country: None (occurrence: None)
  Receive Date: 20040329
  Receipt Date: 20040311
  Transmission Date: 20041129
  Serious: No
  Sender: FDA-Public Use
  Company Number: F04200300227

PATIENT
  Age: 63 Year
  Sex: Male

DRUGS (3)
  1. ELOXATIN [Suspect]
     Indication: MALIGNANT ANORECTAL NEOPLASM
     Dosage: 50 MG/M2 1/WEEK (CUMULATIVE DOSE : 600 MG/M2)
     Route: 041
     Dates: start: 20030127, end: 20030127
  2. KEVATRIL (GRANISETRON HYDROCHLORIDE) [Concomitant]
  3. DEXAHEXAL   (DEXAMETHASONE PHOSPHATE) [Concomitant]

REACTIONS (3)
  - GAIT DISTURBANCE [None]
  - METASTASIS [None]
  - POLYNEUROPATHY [None]
